FAERS Safety Report 20494484 (Version 4)
Quarter: 2022Q2

REPORT INFORMATION
  Report Type: Spontaneous
  Country: US (occurrence: US)
  Receive Date: 20220221
  Receipt Date: 20220627
  Transmission Date: 20220721
  Serious: No
  Sender: FDA-Public Use
  Company Number: US-LEADINGPHARMA-US-2022LEASPO00028

PATIENT
  Sex: Female

DRUGS (6)
  1. FUROSEMIDE [Suspect]
     Active Substance: FUROSEMIDE
     Indication: Oedema
     Route: 048
  2. FUROSEMIDE [Suspect]
     Active Substance: FUROSEMIDE
     Indication: Cardiac disorder
  3. FUROSEMIDE [Suspect]
     Active Substance: FUROSEMIDE
  4. FUROSEMIDE [Suspect]
     Active Substance: FUROSEMIDE
  5. FUROSEMIDE [Suspect]
     Active Substance: FUROSEMIDE
  6. FUROSEMIDE [Suspect]
     Active Substance: FUROSEMIDE

REACTIONS (2)
  - Product commingling [Unknown]
  - Circumstance or information capable of leading to medication error [Unknown]

NARRATIVE: CASE EVENT DATE: 20220207
